APPROVED DRUG PRODUCT: CEFOTETAN
Active Ingredient: CEFOTETAN DISODIUM
Strength: EQ 2GM BASE/VIAL
Dosage Form/Route: INJECTABLE;INJECTION
Application: A065374 | Product #002 | TE Code: AP
Applicant: FRESENIUS KABI USA LLC
Approved: Aug 9, 2007 | RLD: No | RS: Yes | Type: RX